FAERS Safety Report 24449419 (Version 2)
Quarter: 2024Q4

REPORT INFORMATION
  Report Type: Report from Study
  Country: FR (occurrence: FR)
  Receive Date: 20241017
  Receipt Date: 20241122
  Transmission Date: 20250115
  Serious: Yes (Life-Threatening, Hospitalization, Other)
  Sender: AUROBINDO
  Company Number: FR-AUROBINDO-AUR-APL-2024-045951

PATIENT
  Age: 59 Year
  Sex: Female

DRUGS (9)
  1. ASPIRIN [Interacting]
     Active Substance: ASPIRIN
     Indication: Antiplatelet therapy
     Dosage: 75 MILLIGRAM, ONCE A DAY
     Route: 065
  2. ASPIRIN [Interacting]
     Active Substance: ASPIRIN
     Indication: Tumour thrombosis
  3. RIVAROXABAN [Interacting]
     Active Substance: RIVAROXABAN
     Indication: Tumour thrombosis
     Dosage: 20 MILLIGRAM, ONCE A DAY (WHO REFUSED THE ANTICOAGULANT SUBCUTANEOUS ROUTE)
     Route: 058
  4. VENLAFAXINE [Interacting]
     Active Substance: VENLAFAXINE HYDROCHLORIDE
     Indication: Product used for unknown indication
     Dosage: 75 MILLIGRAM, ONCE A DAY
     Route: 065
  5. GABAPENTIN [Interacting]
     Active Substance: GABAPENTIN
     Indication: Product used for unknown indication
     Dosage: 100 MILLIGRAM, 3 TIMES A DAY
     Route: 065
  6. PANTOPRAZOLE [Interacting]
     Active Substance: PANTOPRAZOLE
     Indication: Product used for unknown indication
     Dosage: 20 MILLIGRAM, ONCE A DAY
     Route: 065
  7. TRAMADOL [Interacting]
     Active Substance: TRAMADOL
     Indication: Product used for unknown indication
     Dosage: 50 MILLIGRAM IF NECESSARY
     Route: 065
  8. CABOZANTINIB [Interacting]
     Active Substance: CABOZANTINIB
     Indication: Renal cancer metastatic
     Dosage: 40 MILLIGRAM, ONCE A DAY
     Route: 065
  9. CABOZANTINIB [Interacting]
     Active Substance: CABOZANTINIB
     Indication: Immunochemotherapy

REACTIONS (9)
  - Anaemia [Recovered/Resolved]
  - Epistaxis [Recovered/Resolved]
  - Rectal haemorrhage [Recovered/Resolved]
  - Gastrointestinal haemorrhage [Recovered/Resolved]
  - Melaena [Recovered/Resolved]
  - Drug interaction [Recovered/Resolved]
  - Haemorrhage [Recovered/Resolved]
  - Product use in unapproved indication [Unknown]
  - Drug level increased [Unknown]
